FAERS Safety Report 6612084-0 (Version None)
Quarter: 2010Q1

REPORT INFORMATION
  Report Type: 
  Country: None (occurrence: None)
  Receive Date: 20100303
  Receipt Date: 20100222
  Transmission Date: 20100710
  Serious: Yes (Other)
  Sender: FDA-Public Use
  Company Number: B0636933A

PATIENT
  Age: 27 Year
  Sex: Female

DRUGS (1)
  1. ALBENDAZOLE [Suspect]
     Indication: ECHINOCOCCIASIS
     Dosage: 800MG PER DAY
     Route: 065
     Dates: start: 20051201

REACTIONS (1)
  - TRANSAMINASES INCREASED [None]
